FAERS Safety Report 5347139-4 (Version None)
Quarter: 2007Q2

REPORT INFORMATION
  Report Type: 
  Country: None (occurrence: None)
  Receive Date: 20070509
  Receipt Date: 20060913
  Transmission Date: 20071010
  Serious: Yes (Other)
  Sender: FDA-Public Use
  Company Number: 14795

PATIENT
  Age: 58 Year
  Sex: Female

DRUGS (4)
  1. BLEOMYCIN [Suspect]
     Indication: HODGKIN'S DISEASE
  2. ADRIAMYCIN PFS [Concomitant]
  3. VINBLASTINE SULFATE [Concomitant]
  4. DACARBAZINE [Concomitant]

REACTIONS (1)
  - PNEUMONITIS [None]
